FAERS Safety Report 13486212 (Version 3)
Quarter: 2018Q1

REPORT INFORMATION
  Report Type: Spontaneous
  Country: US (occurrence: US)
  Receive Date: 20170426
  Receipt Date: 20180320
  Transmission Date: 20180508
  Serious: Yes (Other)
  Sender: FDA-Public Use
  Company Number: US-PFIZER INC-2017169487

PATIENT
  Age: 58 Year
  Sex: Male

DRUGS (7)
  1. PIPERACILLIN AND TAZOBACTAM [Concomitant]
     Active Substance: PIPERACILLIN SODIUM\TAZOBACTAM SODIUM
     Indication: ANTIBIOTIC THERAPY
     Dosage: 3.375 G, 3X/DAY
     Route: 042
  2. POLYMETHYLMETHACRYLATE [Concomitant]
     Indication: ACETABULUM FRACTURE
     Dosage: UNK
  3. VANCOMYCIN [Concomitant]
     Active Substance: VANCOMYCIN
     Indication: ACETABULUM FRACTURE
     Dosage: 3 G, UNK
  4. DEXAMETHASONE. [Concomitant]
     Active Substance: DEXAMETHASONE
     Dosage: UNK
  5. CEFTRIAXONE. [Concomitant]
     Active Substance: CEFTRIAXONE
     Indication: ANTIBIOTIC THERAPY
     Dosage: UNK
  6. GENTAMICIN. [Concomitant]
     Active Substance: GENTAMICIN
     Indication: ACETABULUM FRACTURE
     Dosage: 0.5 G, UNK
  7. TOBRAMYCIN. [Suspect]
     Active Substance: TOBRAMYCIN
     Indication: ACETABULUM FRACTURE
     Dosage: 3.6 G, UNK

REACTIONS (1)
  - Acute kidney injury [Recovering/Resolving]
